FAERS Safety Report 19052607 (Version 1)
Quarter: 2021Q1

REPORT INFORMATION
  Report Type: Spontaneous
  Country: KR (occurrence: KR)
  Receive Date: 20210324
  Receipt Date: 20210324
  Transmission Date: 20210420
  Serious: Yes (Death, Other)
  Sender: FDA-Public Use
  Company Number: KR-ALXN-A202103611

PATIENT
  Age: 50 Year

DRUGS (1)
  1. SOLIRIS [Suspect]
     Active Substance: ECULIZUMAB
     Indication: ATYPICAL HAEMOLYTIC URAEMIC SYNDROME
     Dosage: UNK (3 VIALS)
     Route: 065
     Dates: start: 20210309

REACTIONS (1)
  - Death [Fatal]

NARRATIVE: CASE EVENT DATE: 20210315
